FAERS Safety Report 9594513 (Version 1)
Quarter: 2013Q3

REPORT INFORMATION
  Report Type: Spontaneous
  Country: US (occurrence: None)
  Receive Date: 20130923
  Receipt Date: 20130923
  Transmission Date: 20140515
  Serious: Yes (Hospitalization)
  Sender: FDA-Public Use
  Company Number: 2012STP000785

PATIENT
  Age: 46 Year
  Sex: Male

DRUGS (1)
  1. MATULANE [Suspect]
     Indication: CENTRAL NERVOUS SYSTEM LYMPHOMA
     Route: 048
     Dates: start: 20121207

REACTIONS (1)
  - Fatigue [None]
